FAERS Safety Report 20476292 (Version 1)
Quarter: 2022Q1

REPORT INFORMATION
  Report Type: Spontaneous
  Country: CA (occurrence: CA)
  Receive Date: 20220215
  Receipt Date: 20220215
  Transmission Date: 20220423
  Serious: Yes (Hospitalization, Other)
  Sender: FDA-Public Use
  Company Number: CA-ELI_LILLY_AND_COMPANY-CA202202005088

PATIENT
  Age: 81 Year
  Sex: Female

DRUGS (2)
  1. HUMULIN R [Suspect]
     Active Substance: INSULIN HUMAN
     Indication: Diabetes mellitus
     Dosage: 15 U, DAILY (AT NIGHT)
     Route: 065
  2. HUMULIN N [Suspect]
     Active Substance: INSULIN HUMAN
     Indication: Diabetes mellitus
     Dosage: 58 U, DAILY (AT NIGHT)
     Route: 058

REACTIONS (11)
  - Blindness unilateral [Unknown]
  - Pulmonary thrombosis [Recovered/Resolved]
  - Angina pectoris [Unknown]
  - Cardiomyopathy [Unknown]
  - Eye haemorrhage [Unknown]
  - Fall [Unknown]
  - Arthritis [Unknown]
  - Joint injury [Unknown]
  - Visual impairment [Unknown]
  - Fatigue [Unknown]
  - Dyspnoea [Unknown]

NARRATIVE: CASE EVENT DATE: 20080101
